FAERS Safety Report 15637409 (Version 1)
Quarter: 2018Q4

REPORT INFORMATION
  Report Type: Spontaneous
  Country: US (occurrence: US)
  Receive Date: 20181120
  Receipt Date: 20181120
  Transmission Date: 20190205
  Serious: No
  Sender: FDA-Public Use
  Company Number: US-CIPLA LTD.-2018US15502

PATIENT

DRUGS (4)
  1. OMEPRAZOLE. [Concomitant]
     Active Substance: OMEPRAZOLE
     Indication: GASTRIC DISORDER
     Dosage: 40 MG, ONE TABLET TWICE A DAY
     Route: 065
  2. GABAPENTIN. [Suspect]
     Active Substance: GABAPENTIN
     Dosage: 300 MG, QD
     Route: 048
     Dates: start: 20170922
  3. GABAPENTIN. [Suspect]
     Active Substance: GABAPENTIN
     Indication: GASTRITIS
     Dosage: 100 MG, BID
     Route: 048
     Dates: start: 20170922
  4. AMITRIPTYLINE [Concomitant]
     Active Substance: AMITRIPTYLINE
     Indication: GASTRIC DISORDER
     Dosage: 75 MG, QD
     Route: 065

REACTIONS (1)
  - Rosacea [Recovered/Resolved]
